FAERS Safety Report 9276744 (Version 1)
Quarter: 2013Q2

REPORT INFORMATION
  Report Type: Spontaneous
  Country: US (occurrence: US)
  Receive Date: 20130507
  Receipt Date: 20130507
  Transmission Date: 20140414
  Serious: Yes (Hospitalization)
  Sender: FDA-Public Use
  Company Number: US-ELI_LILLY_AND_COMPANY-US201304008857

PATIENT
  Sex: Female

DRUGS (3)
  1. HUMULIN REGULAR [Suspect]
     Indication: DIABETES MELLITUS
     Dosage: 10 U, QD
     Dates: start: 201206
  2. HUMULIN REGULAR [Suspect]
     Dosage: 5 U, QD
  3. HUMULIN REGULAR [Suspect]
     Dosage: 6 U, QD
     Dates: start: 201304

REACTIONS (3)
  - Herpes zoster [Unknown]
  - Varicella [Unknown]
  - Blood glucose decreased [Unknown]
